FAERS Safety Report 6223727-8 (Version None)
Quarter: 2009Q2

REPORT INFORMATION
  Report Type: 
  Country: None (occurrence: None)
  Receive Date: 20090611
  Receipt Date: 20090512
  Transmission Date: 20091009
  Serious: No
  Sender: FDA-Public Use
  Company Number: PR-ABBOTT-09P-131-0573473-00

PATIENT
  Sex: Male
  Weight: 62.652 kg

DRUGS (7)
  1. HUMIRA [Suspect]
     Indication: CROHN'S DISEASE
     Route: 058
     Dates: start: 20090101, end: 20090427
  2. IMURAN [Concomitant]
     Indication: RHEUMATOID ARTHRITIS
     Route: 048
     Dates: start: 20090401
  3. IMURAN [Concomitant]
     Route: 048
     Dates: start: 20090401
  4. PENTASA [Concomitant]
     Indication: CROHN'S DISEASE
     Route: 048
     Dates: start: 20080401, end: 20090101
  5. PENTASA [Concomitant]
     Route: 048
     Dates: start: 20090401
  6. PREDNISONE [Concomitant]
     Indication: RHEUMATOID ARTHRITIS
     Dosage: 1 IN 1 DAY, TAPERING DOWN
     Route: 048
     Dates: start: 20090401
  7. FOSAMAX [Concomitant]
     Indication: DRUG USE FOR UNKNOWN INDICATION
     Route: 048

REACTIONS (4)
  - FREQUENT BOWEL MOVEMENTS [None]
  - HAEMATOCHEZIA [None]
  - HAEMOGLOBIN DECREASED [None]
  - WEIGHT DECREASED [None]
